FAERS Safety Report 5374821-5 (Version None)
Quarter: 2007Q2

REPORT INFORMATION
  Report Type: 
  Country: None (occurrence: None)
  Receive Date: 20070629
  Receipt Date: 20070627
  Transmission Date: 20071010
  Serious: Yes (Congenital Anomaly)
  Sender: FDA-Public Use
  Company Number: A0660522A

PATIENT

DRUGS (3)
  1. PAXIL [Suspect]
     Indication: DRUG USE FOR UNKNOWN INDICATION
  2. MULTI-VITAMINS [Concomitant]
  3. SYNTHROID [Concomitant]

REACTIONS (7)
  - ANAL ATRESIA [None]
  - CARDIAC MURMUR [None]
  - CONGENITAL GENITAL MALFORMATION [None]
  - CONGENITAL HYDROCEPHALUS [None]
  - DRUG EXPOSURE DURING PREGNANCY [None]
  - HEART DISEASE CONGENITAL [None]
  - SPINA BIFIDA [None]
